FAERS Safety Report 9844381 (Version 1)
Quarter: 2014Q1

REPORT INFORMATION
  Report Type: Spontaneous
  Country: NL (occurrence: NL)
  Receive Date: 20140127
  Receipt Date: 20140127
  Transmission Date: 20141002
  Serious: Yes (Other)
  Sender: FDA-Public Use
  Company Number: PHHY2014NL008447

PATIENT
  Sex: Female

DRUGS (8)
  1. TETRACOSACTIDE [Suspect]
     Dosage: UNK UKN, UNK
  2. OMEPRAZOLE [Concomitant]
     Dosage: UNK UKN, UNK
  3. LEVOTHYROXINE [Concomitant]
     Dosage: UNK UKN, UNK
  4. NAPROXEN [Concomitant]
     Dosage: UNK UKN, UNK
  5. MORFINE [Concomitant]
     Dosage: UNK UKN, UNK
  6. TRAMADOL [Concomitant]
     Dosage: UNK UKN, UNK
  7. CLONAZEPAM [Concomitant]
     Dosage: UNK UKN, UNK
  8. TEMAZEPAM [Concomitant]
     Dosage: UNK UKN, UNK

REACTIONS (1)
  - Eye disorder [Recovered/Resolved]
